FAERS Safety Report 9564903 (Version 1)
Quarter: 2013Q3

REPORT INFORMATION
  Report Type: Spontaneous
  Country: US (occurrence: US)
  Receive Date: 20130930
  Receipt Date: 20130930
  Transmission Date: 20140515
  Serious: No
  Sender: FDA-Public Use
  Company Number: US-PFIZER INC-2013277709

PATIENT
  Age: 70 Year
  Sex: Female
  Weight: 55.3 kg

DRUGS (2)
  1. PREMARIN [Suspect]
     Indication: HOT FLUSH
     Dosage: 0.3 MG, 1X/DAY
     Route: 048
     Dates: start: 201206
  2. ATIVAN [Concomitant]
     Dosage: UNK

REACTIONS (2)
  - Gastritis [Not Recovered/Not Resolved]
  - Abdominal pain upper [Not Recovered/Not Resolved]
